FAERS Safety Report 5890720-4 (Version None)
Quarter: 2008Q3

REPORT INFORMATION
  Report Type: 
  Country: None (occurrence: None)
  Receive Date: 20080922
  Receipt Date: 20080910
  Transmission Date: 20090109
  Serious: Yes (Hospitalization)
  Sender: FDA-Public Use
  Company Number: US-AMGEN-US307170

PATIENT
  Sex: Female

DRUGS (11)
  1. PROCRIT [Suspect]
     Indication: RENAL FAILURE CHRONIC
     Dates: start: 20080701
  2. GLIPIZIDE [Concomitant]
  3. DIGOXIN [Concomitant]
  4. SIMVASTATIN [Concomitant]
  5. ASPIRIN [Concomitant]
  6. CARVEDILOL [Concomitant]
  7. JANUVIA [Concomitant]
  8. CALCITRIOL [Concomitant]
  9. FERROUS SULFATE TAB [Concomitant]
  10. FUROSEMIDE [Concomitant]
  11. POTASSIUM CHLORIDE [Concomitant]

REACTIONS (3)
  - DEHYDRATION [None]
  - IMPLANTABLE DEFIBRILLATOR INSERTION [None]
  - LOSS OF CONSCIOUSNESS [None]
